FAERS Safety Report 4683549-6 (Version None)
Quarter: 2005Q2

REPORT INFORMATION
  Report Type: 
  Country: None (occurrence: None)
  Receive Date: 20050606
  Receipt Date: 20050606
  Transmission Date: 20051028
  Serious: Yes (Life-Threatening)
  Sender: FDA-Public Use
  Company Number: None

PATIENT
  Sex: Male
  Weight: 110.2241 kg

DRUGS (2)
  1. DOXIL [Suspect]
     Indication: SARCOMA
     Dosage: 97MG    Q28DAYS    INTRAVENOU
     Route: 042
     Dates: start: 20050415, end: 20050525
  2. TOPOTECAN       2MG/M2 [Suspect]
     Indication: SARCOMA
     Dosage: 4.7       DAY 1,8,15    INTRAVENOU
     Route: 042
     Dates: start: 20050415, end: 20050525

REACTIONS (1)
  - FEBRILE NEUTROPENIA [None]
